FAERS Safety Report 5042919-7 (Version None)
Quarter: 2006Q2

REPORT INFORMATION
  Report Type: 
  Country: None (occurrence: None)
  Receive Date: 20060601
  Receipt Date: 20060222
  Transmission Date: 20061013
  Serious: No
  Sender: FDA-Public Use
  Company Number: 2006PV009098

PATIENT
  Age: 64 Year
  Sex: Female
  Weight: 63.9572 kg

DRUGS (3)
  1. BYETTA [Suspect]
     Indication: DIABETES MELLITUS NON-INSULIN-DEPENDENT
     Dosage: 5 MCG;BID;SC
     Route: 058
     Dates: start: 20060207
  2. METFORMIN [Concomitant]
  3. AMARYL [Concomitant]

REACTIONS (7)
  - ANOREXIA [None]
  - DECREASED APPETITE [None]
  - DYSGEUSIA [None]
  - ERUCTATION [None]
  - FEELING ABNORMAL [None]
  - MALAISE [None]
  - WEIGHT DECREASED [None]
